FAERS Safety Report 14975144 (Version 1)
Quarter: 2018Q2

REPORT INFORMATION
  Report Type: Spontaneous
  Country: LS (occurrence: LS)
  Receive Date: 20180605
  Receipt Date: 20180605
  Transmission Date: 20180711
  Serious: Yes (Hospitalization, Other)
  Sender: FDA-Public Use
  Company Number: LS-JACOBUS PHARMACEUTICAL COMPANY, INC.-2049024

PATIENT
  Age: 41 Year
  Sex: Female
  Weight: 44.09 kg

DRUGS (2)
  1. CYCLOSERINE. [Suspect]
     Active Substance: CYCLOSERINE
  2. PASER [Suspect]
     Active Substance: AMINOSALICYLIC ACID
     Indication: TUBERCULOSIS
     Dates: start: 20180223

REACTIONS (1)
  - Acute psychosis [Unknown]

NARRATIVE: CASE EVENT DATE: 20180421
